FAERS Safety Report 5467698-0 (Version None)
Quarter: 2007Q3

REPORT INFORMATION
  Report Type: 
  Country: None (occurrence: None)
  Receive Date: 20070925
  Receipt Date: 20070918
  Transmission Date: 20080115
  Serious: No
  Sender: FDA-Public Use
  Company Number: US-ELI_LILLY_AND_COMPANY-US200705006279

PATIENT
  Age: 62 Year
  Sex: Female

DRUGS (3)
  1. NSAID'S [Concomitant]
  2. BYETTA [Suspect]
     Indication: TYPE 2 DIABETES MELLITUS
     Dosage: 5 UG, 2/D
     Route: 065
     Dates: start: 20060414, end: 20060512
  3. BYETTA [Suspect]
     Dosage: 10 UG, 2/D
     Route: 058
     Dates: start: 20060512, end: 20070101

REACTIONS (1)
  - WEIGHT DECREASED [None]
